FAERS Safety Report 14552058 (Version 1)
Quarter: 2018Q1

REPORT INFORMATION
  Report Type: Spontaneous
  Country: US (occurrence: US)
  Receive Date: 20180220
  Receipt Date: 20180220
  Transmission Date: 20180509
  Serious: Yes (Other)
  Sender: FDA-Public Use
  Company Number: US-009507513-1802USA006823

PATIENT
  Sex: Male

DRUGS (2)
  1. ZOSTAVAX [Suspect]
     Active Substance: VARICELLA-ZOSTER VIRUS STRAIN OKA/MERCK LIVE ANTIGEN
     Indication: PROPHYLAXIS
     Dates: start: 2016, end: 2016
  2. STERILE DILUENT [Suspect]
     Active Substance: WATER
     Indication: PROPHYLAXIS
     Dosage: UNK
     Dates: start: 2016

REACTIONS (1)
  - Ophthalmic herpes zoster [Recovered/Resolved]

NARRATIVE: CASE EVENT DATE: 2016
